FAERS Safety Report 5195826-3 (Version None)
Quarter: 2006Q4

REPORT INFORMATION
  Report Type: 
  Country: None (occurrence: None)
  Receive Date: 20061227
  Receipt Date: 20061213
  Transmission Date: 20070319
  Serious: Yes (Other)
  Sender: FDA-Public Use
  Company Number: PAR_1159_2006

PATIENT

DRUGS (5)
  1. LISINOPRIL [Suspect]
     Dosage: DF PO
     Route: 048
  2. PLAVIX [Suspect]
     Dosage: 75 MG PO
     Route: 048
  3. ASPIRIN [Suspect]
     Dosage: DF PO
     Route: 048
  4. PREVASTATIN SODIUM [Concomitant]
  5. EZETIMIBE [Concomitant]

REACTIONS (6)
  - COUGH [None]
  - FEELING ABNORMAL [None]
  - HAEMOPTYSIS [None]
  - OEDEMA PERIPHERAL [None]
  - PAIN IN EXTREMITY [None]
  - SENSATION OF FOREIGN BODY [None]
